FAERS Safety Report 8430341-2 (Version None)
Quarter: 2012Q2

REPORT INFORMATION
  Report Type: 
  Country: None (occurrence: None)
  Receive Date: 20120612
  Receipt Date: 20120604
  Transmission Date: 20120825
  Serious: No
  Sender: FDA-Public Use
  Company Number: US-B.I. PHARMACEUTICALS,INC./RIDGEFIELD-2012-BP-12985BP

PATIENT
  Sex: Female

DRUGS (5)
  1. PRADAXA [Suspect]
     Indication: ATRIAL FIBRILLATION
     Dosage: 300 MG
     Route: 048
     Dates: start: 20120101
  2. SIMVASTATIN [Concomitant]
     Indication: BLOOD CHOLESTEROL INCREASED
  3. DIGOXIN [Concomitant]
     Indication: CARDIAC DISORDER
  4. LIPITOR [Concomitant]
     Indication: BLOOD CHOLESTEROL INCREASED
  5. CITRACAL [Concomitant]
     Indication: OSTEOPOROSIS

REACTIONS (3)
  - DIARRHOEA [None]
  - ABDOMINAL PAIN UPPER [None]
  - FATIGUE [None]
